FAERS Safety Report 10034707 (Version 1)
Quarter: 2014Q1

REPORT INFORMATION
  Report Type: Spontaneous
  Country: US (occurrence: None)
  Receive Date: 20140306
  Receipt Date: 20140306
  Transmission Date: 20141002
  Serious: Yes (Disabling, Other)
  Sender: FDA-Public Use
  Company Number: 163-21880-13073968

PATIENT
  Age: 63 Year
  Sex: Male
  Weight: 82.1 kg

DRUGS (16)
  1. BENZOTROPINE MESYLATE (BENZATROPINE MESILATE) [Concomitant]
  2. ASPIRINE (ACETYLSALICYLIC ACID) [Concomitant]
  3. AMLODIPINE BESYLATE (AMLODIPINE BESILATE) [Concomitant]
  4. ALLOPURINOL [Concomitant]
  5. REVLIMID (LENALIDOMIDE) (10 MILLIGRAM, CAPSULES) [Suspect]
     Indication: PLASMA CELL MYELOMA
     Dosage: 21 IN 28 D
     Route: 048
     Dates: start: 20120321
  6. SENSIPAR (CINACALCET HYDROCHLORIDE) [Concomitant]
  7. VIAGRA (SILDENAFIL CITRATE) [Concomitant]
  8. CRESTOR (ROSUVASTATIN) [Concomitant]
  9. PREDNISOLONE [Concomitant]
  10. OMEGA-3 (OMEGA-3 TRIGLYCERIDES) [Concomitant]
  11. METHYLPREDNISOLONE [Concomitant]
  12. LANTUS SOLOSTAR (INSULIN GLARGINE) [Concomitant]
  13. NOVOLOG (INSULIN ASPART) [Concomitant]
  14. HYDROCODONE/ACETAMINOPHEN (REMEDEINE) [Concomitant]
  15. GLUCOSE [Concomitant]
  16. DEXAMETHASONE [Concomitant]

REACTIONS (5)
  - Post procedural haemorrhage [None]
  - Renal failure [None]
  - Respiratory tract congestion [None]
  - Diarrhoea [None]
  - Vomiting [None]
